FAERS Safety Report 7903533-6 (Version None)
Quarter: 2011Q4

REPORT INFORMATION
  Report Type: 
  Country: None (occurrence: None)
  Receive Date: 20111103
  Receipt Date: 20111025
  Transmission Date: 20120403
  Serious: Yes (Death)
  Sender: FDA-Public Use
  Company Number: FR-JNJFOC-20111012580

PATIENT

DRUGS (1)
  1. DECITABINE [Suspect]
     Indication: CHRONIC MYELOMONOCYTIC LEUKAEMIA
     Dosage: 20MG/M2, INTRAVENOUS
     Route: 042

REACTIONS (1)
  - RESPIRATORY FAILURE [None]
